FAERS Safety Report 4549404-7 (Version None)
Quarter: 2005Q1

REPORT INFORMATION
  Report Type: 
  Country: None (occurrence: None)
  Receive Date: 20050110
  Receipt Date: 20050110
  Transmission Date: 20050727
  Serious: Yes (Other)
  Sender: FDA-Public Use
  Company Number: None

PATIENT
  Sex: Female

DRUGS (2)
  1. CORRECTOL [Suspect]
     Indication: CONSTIPATION
     Dosage: ORAL
     Route: 048
     Dates: start: 19960101, end: 20030901
  2. EX-LAX [Suspect]
     Dosage: ORAL
     Route: 048
     Dates: start: 19860101, end: 20030901

REACTIONS (15)
  - ABDOMINAL DISTENSION [None]
  - ABDOMINAL PAIN [None]
  - BENIGN LYMPH NODE NEOPLASM [None]
  - CONSTIPATION [None]
  - FREQUENT BOWEL MOVEMENTS [None]
  - HAEMATOCHEZIA [None]
  - HAEMORRHOIDS [None]
  - INTENTIONAL MISUSE [None]
  - LAXATIVE ABUSE [None]
  - NAUSEA [None]
  - NEOPLASM MALIGNANT [None]
  - PYREXIA [None]
  - TREATMENT NONCOMPLIANCE [None]
  - UTERINE LEIOMYOMA [None]
  - VOMITING [None]
